FAERS Safety Report 6716384-5 (Version None)
Quarter: 2010Q2

REPORT INFORMATION
  Report Type: 
  Country: None (occurrence: None)
  Receive Date: 20100507
  Receipt Date: 20100427
  Transmission Date: 20101027
  Serious: Yes (Other)
  Sender: FDA-Public Use
  Company Number: US-WYE-H14402710

PATIENT
  Sex: Male
  Weight: 68.1 kg

DRUGS (7)
  1. PRISTIQ [Suspect]
     Indication: DEPRESSION
     Route: 048
     Dates: start: 20090101, end: 20100101
  2. PRISTIQ [Suspect]
     Route: 048
     Dates: start: 20100101, end: 20100101
  3. PRISTIQ [Suspect]
     Route: 048
     Dates: start: 20100101, end: 20100301
  4. PRISTIQ [Suspect]
     Route: 048
     Dates: start: 20100301, end: 20100101
  5. PRISTIQ [Suspect]
     Route: 048
     Dates: start: 20100101
  6. VITAMINS WITH MINERALS [Concomitant]
     Dosage: UNKNOWN
  7. KLONOPIN [Concomitant]
     Dosage: UNKNOWN

REACTIONS (8)
  - CATARACT OPERATION [None]
  - CONSTIPATION [None]
  - DIZZINESS [None]
  - FATIGUE [None]
  - FEELING ABNORMAL [None]
  - MUSCLE RIGIDITY [None]
  - MUSCULAR WEAKNESS [None]
  - VISION BLURRED [None]
